FAERS Safety Report 6774976 (Version 3)
Quarter: 2017Q1

REPORT INFORMATION
  Report Type: Spontaneous
  Country: IT (occurrence: IT)
  Receive Date: 20080930
  Receipt Date: 20170119
  Transmission Date: 20170429
  Serious: No
  Sender: FDA-Public Use
  Company Number: PHBS2008IT05810

PATIENT
  Age: 62 Year
  Sex: Male

DRUGS (6)
  1. ENTACAPONE. [Suspect]
     Active Substance: ENTACAPONE
     Indication: PARKINSON^S DISEASE
     Dosage: UPTO 600 MG, QD
     Route: 065
  2. LEVODOPA+CARBIDOPA [Suspect]
     Active Substance: CARBIDOPA\LEVODOPA
     Indication: PARKINSON^S DISEASE
     Dosage: UNK
     Route: 065
  3. LEVODOPA+CARBIDOPA [Suspect]
     Active Substance: CARBIDOPA\LEVODOPA
     Indication: PLEUROTHOTONUS
     Dosage: 300 MG, QD
     Route: 065
  4. LEVODOPA+CARBIDOPA [Suspect]
     Active Substance: CARBIDOPA\LEVODOPA
     Dosage: (450 CARBIDOPA, 112.5 LEVODOPA) MG, QD
     Route: 065
  5. ENTACAPONE. [Suspect]
     Active Substance: ENTACAPONE
     Indication: PLEUROTHOTONUS
  6. LEVODOPA+CARBIDOPA [Suspect]
     Active Substance: CARBIDOPA\LEVODOPA
     Dosage: (1000 CARBIDOPA, 100 LEVODOPA) MG, QD
     Route: 065

REACTIONS (1)
  - Therapeutic response decreased [Unknown]
